FAERS Safety Report 11185481 (Version 1)
Quarter: 2015Q2

REPORT INFORMATION
  Report Type: Spontaneous
  Country: FR (occurrence: FR)
  Receive Date: 20150612
  Receipt Date: 20150612
  Transmission Date: 20150821
  Serious: Yes (Life-Threatening, Hospitalization, Disabling, Other)
  Sender: FDA-Public Use
  Company Number: FR-PFIZER INC-2015188671

PATIENT
  Age: 8 Month
  Sex: Male
  Weight: 9 kg

DRUGS (7)
  1. DOLIPRANE [Concomitant]
     Active Substance: ACETAMINOPHEN
     Dosage: DOSE ADJUSTED TO BODY WEIGHT
     Route: 048
     Dates: start: 20150311, end: 20150315
  2. PRIMALAN [Concomitant]
     Active Substance: MEQUITAZINE
     Indication: NASOPHARYNGITIS
     Dosage: UNK
     Dates: start: 201503
  3. NASONEX [Concomitant]
     Active Substance: MOMETASONE FUROATE
     Indication: NASOPHARYNGITIS
     Dosage: UNK
     Dates: start: 201503
  4. ADIARIL [Concomitant]
     Indication: DIARRHOEA
     Dosage: UNK
     Dates: start: 201503
  5. CHILDRENS ADVIL [Suspect]
     Active Substance: IBUPROFEN
     Dosage: DOSE ADJUSTED TO BODY WEIGHT
     Route: 048
     Dates: start: 20150311, end: 20150315
  6. TIORFAN [Concomitant]
     Active Substance: RACECADOTRIL
     Indication: DIARRHOEA
     Dosage: UNK
     Dates: start: 201503
  7. SOLACY /00044201/ [Concomitant]
     Indication: NASOPHARYNGITIS
     Dosage: UNK
     Dates: start: 201503

REACTIONS (11)
  - Rotavirus infection [Unknown]
  - Moraxella infection [Unknown]
  - Hypoxic-ischaemic encephalopathy [Recovered/Resolved with Sequelae]
  - Pneumonia pneumococcal [Unknown]
  - Pseudomonas infection [Unknown]
  - Condition aggravated [Unknown]
  - Acute respiratory distress syndrome [Recovered/Resolved]
  - Epilepsy [Not Recovered/Not Resolved]
  - Shock [Unknown]
  - Varicella [Unknown]
  - Agranulocytosis [Recovered/Resolved]

NARRATIVE: CASE EVENT DATE: 2015
